FAERS Safety Report 9188510 (Version 1)
Quarter: 2013Q1

REPORT INFORMATION
  Report Type: Spontaneous
  Country: GB (occurrence: GB)
  Receive Date: 20130325
  Receipt Date: 20130325
  Transmission Date: 20140127
  Serious: Yes (Other)
  Sender: FDA-Public Use
  Company Number: PHHY2013GB026896

PATIENT
  Age: 75 Year
  Sex: Male
  Weight: 68.94 kg

DRUGS (7)
  1. TAMSULOSIN HYDROCHLORIDE [Suspect]
     Indication: URINARY TRACT DISORDER
     Dosage: UNK UKN, UNK
     Route: 048
     Dates: start: 20130201, end: 20130214
  2. NIFEDIPINE [Concomitant]
  3. FUROSEMIDE [Concomitant]
     Dosage: UNK UKN, UNK
  4. DIAZEPAM [Concomitant]
  5. VENTOLIN [Concomitant]
  6. QVAR [Concomitant]
     Dosage: UNK UKN, UNK
  7. ENALAPRIL MALEATE [Concomitant]

REACTIONS (2)
  - Feeling hot [Recovering/Resolving]
  - Sensation of pressure [Recovering/Resolving]
